FAERS Safety Report 19451518 (Version 1)
Quarter: 2021Q2

REPORT INFORMATION
  Report Type: Spontaneous
  Country: US (occurrence: US)
  Receive Date: 20210623
  Receipt Date: 20210623
  Transmission Date: 20210717
  Serious: No
  Sender: FDA-Public Use
  Company Number: ALC2021US001859

PATIENT
  Sex: Male

DRUGS (1)
  1. PATADAY ONCE DAILY RELIEF [Suspect]
     Active Substance: OLOPATADINE HYDROCHLORIDE
     Indication: EYE ALLERGY
     Dosage: 02 %, QD
     Route: 065
     Dates: start: 20210301

REACTIONS (3)
  - Dry skin [Recovering/Resolving]
  - Eyelid margin crusting [Recovering/Resolving]
  - Skin disorder [Unknown]
